FAERS Safety Report 6640384-7 (Version None)
Quarter: 2010Q1

REPORT INFORMATION
  Report Type: 
  Country: None (occurrence: None)
  Receive Date: 20100318
  Receipt Date: 20100312
  Transmission Date: 20100710
  Serious: Yes (Other)
  Sender: FDA-Public Use
  Company Number: US-MYLANLABS-2010S1001889

PATIENT
  Age: 26 Year
  Sex: Male
  Weight: 78.47 kg

DRUGS (5)
  1. CLOZAPINE [Suspect]
     Indication: PSYCHOTIC DISORDER
     Route: 048
     Dates: start: 20100101, end: 20100205
  2. CLOZAPINE [Suspect]
     Indication: SCHIZOPHRENIA
     Route: 048
     Dates: start: 20100101, end: 20100205
  3. CLOZAPINE [Suspect]
     Route: 048
     Dates: start: 20100101, end: 20100205
  4. CLOZAPINE [Suspect]
     Route: 048
     Dates: start: 20100101, end: 20100205
  5. ATENOLOL [Concomitant]

REACTIONS (5)
  - CHEST PAIN [None]
  - CONVULSION [None]
  - DYSPNOEA [None]
  - NEUTROPHIL COUNT INCREASED [None]
  - PYREXIA [None]
